FAERS Safety Report 10152702 (Version 1)
Quarter: 2014Q2

REPORT INFORMATION
  Report Type: Spontaneous
  Country: US (occurrence: None)
  Receive Date: 20140502
  Receipt Date: 20140502
  Transmission Date: 20141212
  Serious: Yes (Hospitalization)
  Sender: FDA-Public Use
  Company Number: None

PATIENT
  Age: 69 Year
  Sex: Male
  Weight: 76.2 kg

DRUGS (1)
  1. 5-FLUOROURACIL (5-FU) [Suspect]
     Dates: end: 20140426

REACTIONS (5)
  - Muscular weakness [None]
  - Fall [None]
  - Cerebrovascular accident [None]
  - Grip strength decreased [None]
  - Dysgraphia [None]
